FAERS Safety Report 9291444 (Version 1)
Quarter: 2013Q2

REPORT INFORMATION
  Report Type: Spontaneous
  Country: US (occurrence: US)
  Receive Date: 20130515
  Receipt Date: 20130515
  Transmission Date: 20140414
  Serious: No
  Sender: FDA-Public Use
  Company Number: US-ASTRAZENECA-2013SE31599

PATIENT
  Age: 78 Year
  Sex: Female
  Weight: 77.1 kg

DRUGS (3)
  1. SEROQUEL XR [Suspect]
     Indication: BIPOLAR DISORDER
     Route: 048
     Dates: start: 201302
  2. SEROQUEL XR [Suspect]
     Indication: DEMENTIA ALZHEIMER^S TYPE
     Route: 048
     Dates: start: 201302
  3. SEROQUEL XR [Suspect]
     Indication: DEMENTIA
     Route: 048
     Dates: start: 201302

REACTIONS (2)
  - Hypersomnia [Unknown]
  - Intentional drug misuse [Unknown]
